FAERS Safety Report 22301111 (Version 1)
Quarter: 2023Q2

REPORT INFORMATION
  Report Type: Spontaneous
  Country: US (occurrence: US)
  Receive Date: 20230509
  Receipt Date: 20230509
  Transmission Date: 20230722
  Serious: No
  Sender: FDA-Public Use
  Company Number: US-SA-SAC20230504001393

PATIENT
  Age: 7 Year
  Sex: Male

DRUGS (1)
  1. ELOCTATE [Suspect]
     Active Substance: EFMOROCTOCOG ALFA
     Dosage: 1250 IU
     Route: 065

REACTIONS (2)
  - Fall [Unknown]
  - Ligament sprain [Unknown]

NARRATIVE: CASE EVENT DATE: 20230414
